FAERS Safety Report 9124333 (Version 1)
Quarter: 2013Q1

REPORT INFORMATION
  Report Type: Spontaneous
  Country: US (occurrence: US)
  Receive Date: 20130116
  Receipt Date: 20130116
  Transmission Date: 20140127
  Serious: Yes (Other)
  Sender: FDA-Public Use
  Company Number: US-009507513-1301USA003885

PATIENT
  Age: 17 Year
  Sex: Male

DRUGS (5)
  1. SINGULAIR [Suspect]
  2. PARKEMED [Suspect]
  3. DESLORATADINE [Suspect]
  4. LEVOTHYROXINE SODIUM [Suspect]
     Dosage: 75MCG
  5. GLUCOPHAGE [Suspect]
     Dosage: 850MG

REACTIONS (4)
  - Tachycardia [Unknown]
  - Nausea [Unknown]
  - Mydriasis [Unknown]
  - Intentional overdose [Unknown]
